FAERS Safety Report 20331151 (Version 1)
Quarter: 2022Q1

REPORT INFORMATION
  Report Type: Report from Study
  Country: US (occurrence: US)
  Receive Date: 20220113
  Receipt Date: 20220113
  Transmission Date: 20220423
  Serious: Yes (Life-Threatening, Other)
  Sender: FDA-Public Use
  Company Number: US-GILEAD-2022-0564796

PATIENT
  Age: 20 Year
  Sex: Female

DRUGS (1)
  1. REMDESIVIR [Suspect]
     Active Substance: REMDESIVIR
     Indication: COVID-19
     Dosage: UNK, ONCE
     Route: 065
     Dates: start: 20211217, end: 20211217

REACTIONS (6)
  - Hypoxia [Recovered/Resolved]
  - Pharyngeal swelling [Unknown]
  - Swelling face [Unknown]
  - Dyspnoea [Unknown]
  - Hypersensitivity [Unknown]
  - Maternal exposure during pregnancy [Recovered/Resolved]

NARRATIVE: CASE EVENT DATE: 20211217
